FAERS Safety Report 9160681 (Version 1)
Quarter: 2013Q1

REPORT INFORMATION
  Report Type: Report from Study
  Country: US (occurrence: US)
  Receive Date: 20130313
  Receipt Date: 20130313
  Transmission Date: 20140127
  Serious: Yes (Other)
  Sender: FDA-Public Use
  Company Number: US-JNJFOC-20130302789

PATIENT
  Age: 58 Year
  Sex: Female
  Weight: 90.72 kg

DRUGS (8)
  1. SIMPONI [Suspect]
     Indication: ANKYLOSING SPONDYLITIS
     Route: 058
     Dates: start: 201204
  2. SIMPONI [Suspect]
     Indication: RHEUMATOID ARTHRITIS
     Route: 058
     Dates: start: 201204
  3. PREDNISONE [Suspect]
     Indication: ASTHMA
     Route: 048
     Dates: start: 20130220, end: 20130224
  4. NORVASC [Concomitant]
     Indication: BLOOD PRESSURE
     Dates: start: 2001
  5. SYNTHROID [Concomitant]
     Indication: THYROID DISORDER
     Dates: start: 2001
  6. ZEBETA [Concomitant]
     Indication: BLOOD PRESSURE
     Dates: start: 2001
  7. PERSANTINE [Concomitant]
     Indication: ANTICOAGULANT THERAPY
     Dates: start: 2001
  8. PREDNISONE [Concomitant]

REACTIONS (6)
  - Asthma [Not Recovered/Not Resolved]
  - Chest discomfort [Not Recovered/Not Resolved]
  - Abdominal discomfort [Recovered/Resolved]
  - Nasopharyngitis [Not Recovered/Not Resolved]
  - Hyperhidrosis [Unknown]
  - Insomnia [Unknown]
